FAERS Safety Report 19891737 (Version 1)
Quarter: 2021Q3

REPORT INFORMATION
  Report Type: Spontaneous
  Country: US (occurrence: US)
  Receive Date: 20210928
  Receipt Date: 20210928
  Transmission Date: 20211014
  Serious: Yes (Hospitalization, Disabling, Other)
  Sender: FDA-Public Use
  Company Number: US-TEVA-2021-US-1959708

PATIENT
  Age: 48 Year
  Sex: Female
  Weight: 77.1 kg

DRUGS (10)
  1. NEUPOGEN [Concomitant]
     Active Substance: FILGRASTIM
     Route: 058
     Dates: start: 20150512, end: 20150521
  2. DOCETAXEL SAGENT [Suspect]
     Active Substance: DOCETAXEL
     Indication: HORMONE RECEPTOR POSITIVE HER2 NEGATIVE BREAST CANCER
     Dosage: NUMBER OF CYCLE ? 11, FREQUENCY ? EVERY THREE WEEKS
     Route: 042
     Dates: start: 20150417, end: 20151031
  3. DOCETAXEL HOSPIRA [Suspect]
     Active Substance: DOCETAXEL
     Dosage: NUMBER OF CYCLE ? 11, FREQUENCY ? EVERY THREE WEEKS
     Route: 042
     Dates: start: 20150424, end: 20151031
  4. ADRIAMYCIN [Suspect]
     Active Substance: DOXORUBICIN HYDROCHLORIDE
     Indication: HORMONE RECEPTOR POSITIVE HER2 NEGATIVE BREAST CANCER
     Dosage: EVERY 3 WEEKS
     Route: 042
     Dates: start: 20150417, end: 20151031
  5. DOCETAXEL HOSPIRA [Suspect]
     Active Substance: DOCETAXEL
     Indication: HORMONE RECEPTOR POSITIVE HER2 NEGATIVE BREAST CANCER
     Dosage: NUMBER OF CYCLE ? 11, FREQUENCY ? EVERY THREE WEEKS
     Route: 042
     Dates: start: 20150417, end: 20151031
  6. DEXAMETHASONE. [Suspect]
     Active Substance: DEXAMETHASONE
     Route: 065
     Dates: start: 2015
  7. GRANIX [Concomitant]
     Active Substance: TBO-FILGRASTIM
     Route: 058
     Dates: start: 20150827, end: 20150908
  8. DOCETAXEL ACCORD [Suspect]
     Active Substance: DOCETAXEL
     Dosage: NUMBER OF CYCLE ? 11, FREQUENCY ? EVERY THREE WEEKS
     Route: 042
     Dates: start: 20150424, end: 20151031
  9. CYTOXAN [Suspect]
     Active Substance: CYCLOPHOSPHAMIDE
     Indication: HORMONE RECEPTOR POSITIVE HER2 NEGATIVE BREAST CANCER
     Dosage: EVERY 3 WEEKS
     Route: 042
     Dates: start: 20150417, end: 20151031
  10. DOCETAXEL ACCORD [Suspect]
     Active Substance: DOCETAXEL
     Indication: HORMONE RECEPTOR POSITIVE HER2 NEGATIVE BREAST CANCER
     Dosage: NUMBER OF CYCLE ? 11, FREQUENCY ? EVERY THREE WEEKS
     Route: 042
     Dates: start: 20150417, end: 20151031

REACTIONS (12)
  - Neuropathy peripheral [Unknown]
  - Hair texture abnormal [Not Recovered/Not Resolved]
  - Dehydration [Unknown]
  - Capillary leak syndrome [Unknown]
  - Fatigue [Unknown]
  - Alopecia totalis [Not Recovered/Not Resolved]
  - Alopecia areata [Not Recovered/Not Resolved]
  - Asthenia [Unknown]
  - Dyspnoea [Unknown]
  - Madarosis [Not Recovered/Not Resolved]
  - Neutropenic sepsis [Unknown]
  - Hair colour changes [Not Recovered/Not Resolved]

NARRATIVE: CASE EVENT DATE: 20150430
